FAERS Safety Report 10880859 (Version 2)
Quarter: 2015Q2

REPORT INFORMATION
  Report Type: Spontaneous
  Country: GB (occurrence: None)
  Receive Date: 20150225
  Receipt Date: 20150421
  Transmission Date: 20150821
  Serious: Yes (Hospitalization, Other)
  Sender: FDA-Public Use
  Company Number: CL-614(1)-2015

PATIENT
  Age: 47 Year
  Sex: Female

DRUGS (1)
  1. CIPROFLOXACIN UNK [Suspect]
     Active Substance: CIPROFLOXACIN
     Indication: URINARY TRACT INFECTION
     Route: 048
     Dates: start: 20091214, end: 20091221

REACTIONS (3)
  - Renal failure [None]
  - Drug reaction with eosinophilia and systemic symptoms [None]
  - Rhabdomyolysis [None]

NARRATIVE: CASE EVENT DATE: 20091216
